FAERS Safety Report 10413329 (Version 2)
Quarter: 2014Q3

REPORT INFORMATION
  Report Type: Spontaneous
  Country: US (occurrence: US)
  Receive Date: 20140827
  Receipt Date: 20140827
  Transmission Date: 20150326
  Serious: Yes (Hospitalization)
  Sender: FDA-Public Use
  Company Number: US-GLAXOSMITHKLINE-A0731281A

PATIENT
  Sex: Male
  Weight: 125 kg

DRUGS (9)
  1. AVANDIA [Suspect]
     Active Substance: ROSIGLITAZONE MALEATE
     Indication: TYPE 2 DIABETES MELLITUS
     Dosage: 4MG PER DAY
     Route: 048
     Dates: start: 1999, end: 200806
  2. HUMALOG [Concomitant]
     Active Substance: INSULIN LISPRO
     Dates: start: 2005
  3. GLUCOTROL [Concomitant]
     Active Substance: GLIPIZIDE
     Dates: start: 2005
  4. GLUCOPHAGE [Concomitant]
     Active Substance: METFORMIN HYDROCHLORIDE
     Dates: start: 1999
  5. METFORMIN [Concomitant]
     Active Substance: METFORMIN HYDROCHLORIDE
     Dates: start: 2003, end: 2006
  6. LANTUS [Concomitant]
     Active Substance: INSULIN GLARGINE
     Dates: start: 20070906, end: 200802
  7. AMARYL [Concomitant]
     Active Substance: GLIMEPIRIDE
     Dates: start: 2002
  8. HUMULIN NOS [Concomitant]
     Active Substance: INSULIN HUMAN
     Dates: start: 2003
  9. ACTOS [Concomitant]
     Active Substance: PIOGLITAZONE HYDROCHLORIDE
     Dates: start: 2003, end: 2003

REACTIONS (2)
  - Peripheral swelling [Unknown]
  - Myocardial infarction [Not Recovered/Not Resolved]
